FAERS Safety Report 12301301 (Version 6)
Quarter: 2016Q3

REPORT INFORMATION
  Report Type: Spontaneous
  Country: BR (occurrence: BR)
  Receive Date: 20160425
  Receipt Date: 20160707
  Transmission Date: 20161109
  Serious: Yes (Hospitalization, Other)
  Sender: FDA-Public Use
  Company Number: BR-CELGENEUS-BRA-2015095258

PATIENT
  Age: 69 Year
  Sex: Female
  Weight: 56.1 kg

DRUGS (2)
  1. MENOPREM [Concomitant]
     Indication: PRODUCT USED FOR UNKNOWN INDICATION
     Route: 065
     Dates: start: 20150919, end: 20151002
  2. VIDAZA [Suspect]
     Active Substance: AZACITIDINE
     Indication: MYELODYSPLASTIC SYNDROME
     Route: 058
     Dates: start: 20150730, end: 20151001

REACTIONS (3)
  - Febrile neutropenia [Recovered/Resolved with Sequelae]
  - Diarrhoea infectious [Recovered/Resolved]
  - Venous thrombosis [Not Recovered/Not Resolved]

NARRATIVE: CASE EVENT DATE: 20150912
